FAERS Safety Report 5964044-0 (Version None)
Quarter: 2008Q4

REPORT INFORMATION
  Report Type: 
  Country: None (occurrence: None)
  Receive Date: 20081124
  Receipt Date: 20081112
  Transmission Date: 20090506
  Serious: Yes (Other)
  Sender: FDA-Public Use
  Company Number: FI-ELI_LILLY_AND_COMPANY-FI200811002844

PATIENT
  Age: 30 Year
  Sex: Male

DRUGS (2)
  1. ZYPREXA [Suspect]
     Indication: PSYCHOTIC DISORDER
     Dosage: 30 MG, DAILY (1/D)
     Dates: start: 20060101, end: 20060101
  2. ZYPREXA [Suspect]
     Dates: start: 20060101

REACTIONS (5)
  - HYPOPITUITARISM [None]
  - OEDEMA PERIPHERAL [None]
  - OVERDOSE [None]
  - SWELLING FACE [None]
  - WEIGHT INCREASED [None]
